FAERS Safety Report 5226938-3 (Version None)
Quarter: 2007Q1

REPORT INFORMATION
  Report Type: 
  Country: None (occurrence: None)
  Receive Date: 20070201
  Receipt Date: 20070201
  Transmission Date: 20070707
  Serious: Yes (Life-Threatening)
  Sender: FDA-Public Use
  Company Number: None

PATIENT
  Age: 74 Year
  Sex: Female
  Weight: 52.1637 kg

DRUGS (1)
  1. PERSANTINE [Suspect]
     Indication: HEART RATE IRREGULAR
     Dosage: IV
     Route: 042
     Dates: start: 19991108, end: 19991112

REACTIONS (4)
  - AMNESIA [None]
  - CARDIAC ARREST [None]
  - FLUSHING [None]
  - NAUSEA [None]
